FAERS Safety Report 8112793-0 (Version None)
Quarter: 2012Q1

REPORT INFORMATION
  Report Type: 
  Country: None (occurrence: None)
  Receive Date: 20120203
  Receipt Date: 20120124
  Transmission Date: 20120608
  Serious: Yes (Hospitalization)
  Sender: FDA-Public Use
  Company Number: US-SANOFI-AVENTIS-200817203US

PATIENT
  Age: 78 Year
  Sex: Male

DRUGS (4)
  1. IMIPENEM [Suspect]
     Dosage: DOSE AS USED: UNK
     Route: 065
  2. VANCOMYCIN [Suspect]
     Dosage: DOSE AS USED: UNK
     Route: 042
  3. POLYMYCIN B SULFATE [Interacting]
     Dosage: DOSE:1 MILLION UNITS
     Route: 042
  4. FUROSEMIDE [Interacting]
     Dosage: DOSE AS USED: UNK
     Route: 065

REACTIONS (4)
  - RENAL FAILURE [None]
  - CREATININE RENAL CLEARANCE DECREASED [None]
  - DRUG INTERACTION [None]
  - BLOOD CREATININE INCREASED [None]
